FAERS Safety Report 12627197 (Version 1)
Quarter: 2016Q3

REPORT INFORMATION
  Report Type: Report from Study
  Country: US (occurrence: US)
  Receive Date: 20160805
  Receipt Date: 20160805
  Transmission Date: 20161109
  Serious: Yes (Hospitalization, Other)
  Sender: FDA-Public Use
  Company Number: US-ABBVIE-16K-163-1649541-00

PATIENT
  Age: 48 Year
  Sex: Female

DRUGS (3)
  1. HUMIRA [Suspect]
     Active Substance: ADALIMUMAB
     Indication: CROHN^S DISEASE
     Dosage: DAY 1
     Route: 058
     Dates: start: 20160606, end: 20160606
  2. HUMIRA [Suspect]
     Active Substance: ADALIMUMAB
     Route: 058
     Dates: start: 201606
  3. HUMIRA [Suspect]
     Active Substance: ADALIMUMAB
     Dosage: DAY 15
     Route: 058
     Dates: start: 20160620, end: 20160620

REACTIONS (18)
  - Activities of daily living impaired [Unknown]
  - Diarrhoea haemorrhagic [Unknown]
  - Frequent bowel movements [Unknown]
  - Dental care [Unknown]
  - Decreased appetite [Unknown]
  - Nausea [Unknown]
  - Anxiety [Unknown]
  - Pyrexia [Not Recovered/Not Resolved]
  - Rectal haemorrhage [Unknown]
  - Fear [Unknown]
  - Depressed mood [Unknown]
  - Crying [Unknown]
  - Intestinal perforation [Unknown]
  - Frequent bowel movements [Recovering/Resolving]
  - Vomiting [Unknown]
  - Pyrexia [Recovered/Resolved]
  - Proctalgia [Unknown]
  - Insomnia [Unknown]

NARRATIVE: CASE EVENT DATE: 201606
